FAERS Safety Report 13756329 (Version 3)
Quarter: 2018Q1

REPORT INFORMATION
  Report Type: Report from Study
  Country: US (occurrence: US)
  Receive Date: 20170714
  Receipt Date: 20180124
  Transmission Date: 20180508
  Serious: Yes (Hospitalization)
  Sender: FDA-Public Use
  Company Number: US-PFIZER INC-2017291081

PATIENT
  Age: 15 Year
  Sex: Female
  Weight: 69 kg

DRUGS (4)
  1. INCB018424 [Suspect]
     Active Substance: RUXOLITINIB
     Indication: ACUTE LYMPHOCYTIC LEUKAEMIA
     Dosage: 20 MG, 2X/DAY
     Route: 048
     Dates: start: 20170313
  2. MERCAPTOPURINE. [Suspect]
     Active Substance: MERCAPTOPURINE
     Indication: ACUTE LYMPHOCYTIC LEUKAEMIA
     Dosage: 50 MG, NIGHTLY
     Route: 048
     Dates: start: 20170515, end: 20170607
  3. METHOTREXATE SODIUM. [Suspect]
     Active Substance: METHOTREXATE SODIUM
     Indication: ACUTE LYMPHOCYTIC LEUKAEMIA
     Dosage: 9040 MG, SINGLE
     Route: 042
     Dates: start: 20170515
  4. MERCAPTOPURINE. [Suspect]
     Active Substance: MERCAPTOPURINE
     Dosage: 50 MG, NIGHTLY
     Route: 048
     Dates: start: 20170626

REACTIONS (4)
  - Stomatitis [Recovered/Resolved]
  - Proctalgia [Recovered/Resolved]
  - Pyrexia [Recovered/Resolved]
  - Anal inflammation [Recovered/Resolved]

NARRATIVE: CASE EVENT DATE: 20170525
